FAERS Safety Report 4876120-4 (Version None)
Quarter: 2006Q1

REPORT INFORMATION
  Report Type: 
  Country: None (occurrence: None)
  Receive Date: 20060106
  Receipt Date: 20060106
  Transmission Date: 20060701
  Serious: Yes (Life-Threatening)
  Sender: FDA-Public Use
  Company Number: None

PATIENT
  Age: 31 Year
  Sex: Female
  Weight: 54.4316 kg

DRUGS (1)
  1. PRILOCAINE CITANEST 4% [Suspect]
     Indication: DENTAL TREATMENT
     Dosage: 12 CARPULES (1.8ML EACH)  1ML = 40 MG PRILOCAINE
     Dates: start: 20051101

REACTIONS (26)
  - ANXIETY [None]
  - ARRHYTHMIA [None]
  - BALANCE DISORDER [None]
  - CONFUSIONAL STATE [None]
  - CYANOSIS [None]
  - DIZZINESS [None]
  - DRUG LEVEL ABOVE THERAPEUTIC [None]
  - DRUG TOXICITY [None]
  - DYSKINESIA [None]
  - DYSPNOEA [None]
  - ELECTROCARDIOGRAM ABNORMAL [None]
  - FEELING DRUNK [None]
  - FEELING HOT AND COLD [None]
  - HYPERHIDROSIS [None]
  - METHAEMOGLOBINAEMIA [None]
  - MUSCLE TWITCHING [None]
  - NAIL DISCOLOURATION [None]
  - OVERDOSE [None]
  - PAIN [None]
  - PALPITATIONS [None]
  - SOMNOLENCE [None]
  - SWELLING [None]
  - SYNCOPE [None]
  - TACHYCARDIA [None]
  - TREMOR [None]
  - VISION BLURRED [None]
